FAERS Safety Report 7385178-2 (Version None)
Quarter: 2011Q1

REPORT INFORMATION
  Report Type: 
  Country: None (occurrence: None)
  Receive Date: 20110330
  Receipt Date: 20110318
  Transmission Date: 20110831
  Serious: Yes (Life-Threatening, Other)
  Sender: FDA-Public Use
  Company Number: JP-AMGEN-JPNSP2010006569

PATIENT
  Age: 62 Year
  Sex: Female

DRUGS (8)
  1. MEVAN                              /00880402/ [Concomitant]
     Dosage: 5 MG, QD
     Route: 048
  2. RENAGEL                            /01459902/ [Concomitant]
     Dosage: 750 MG, TID
     Route: 048
     Dates: start: 20100818
  3. CALTAN [Concomitant]
     Dosage: 1 G, TID
     Route: 048
  4. REGPARA [Suspect]
     Indication: HYPERPARATHYROIDISM SECONDARY
     Dosage: 25 MG, QD
     Route: 048
     Dates: start: 20101002
  5. BLOPRESS [Concomitant]
     Indication: HYPERTENSION
     Dosage: 2 MG, QD
     Route: 048
     Dates: start: 20100811, end: 20101012
  6. SEPAMIT [Concomitant]
     Indication: HYPERTENSION
     Dosage: 20 MG, QD
     Route: 048
     Dates: end: 20101012
  7. FOSRENOL [Concomitant]
     Dosage: 500 MG, TID
     Route: 048
     Dates: start: 20100801
  8. ARGAMATE [Concomitant]
     Dosage: 25 G, QD
     Route: 048

REACTIONS (1)
  - CEREBRAL INFARCTION [None]
